FAERS Safety Report 14339909 (Version 2)
Quarter: 2018Q1

REPORT INFORMATION
  Report Type: Report from Study
  Country: US (occurrence: US)
  Receive Date: 20171231
  Receipt Date: 20180109
  Transmission Date: 20180509
  Serious: No
  Sender: FDA-Public Use
  Company Number: PHEH2017US042061

PATIENT
  Age: 52 Year
  Sex: Male

DRUGS (1)
  1. COSENTYX [Suspect]
     Active Substance: SECUKINUMAB
     Indication: PSORIASIS
     Dosage: 300 MG, QMO
     Route: 058
     Dates: start: 20170714, end: 20171103

REACTIONS (4)
  - Inappropriate schedule of drug administration [Unknown]
  - Enlarged uvula [Unknown]
  - Odynophagia [Unknown]
  - Dysphagia [Unknown]

NARRATIVE: CASE EVENT DATE: 20170714
